FAERS Safety Report 7076385-7 (Version None)
Quarter: 2010Q4

REPORT INFORMATION
  Report Type: 
  Country: None (occurrence: None)
  Receive Date: 20101022
  Receipt Date: 20101007
  Transmission Date: 20110411
  Serious: Yes (Death)
  Sender: FDA-Public Use
  Company Number: 011490

PATIENT
  Age: 17 Year

DRUGS (2)
  1. BUSULFEX [Suspect]
     Indication: STEM CELL TRANSPLANT
     Dosage: 5 MG/KG
  2. FLUDARABINE [Concomitant]

REACTIONS (1)
  - ACUTE GRAFT VERSUS HOST DISEASE [None]
